FAERS Safety Report 25224602 (Version 2)
Quarter: 2025Q2

REPORT INFORMATION
  Report Type: Spontaneous
  Country: US (occurrence: US)
  Receive Date: 20250422
  Receipt Date: 20250526
  Transmission Date: 20250717
  Serious: Yes (Other)
  Sender: AUROBINDO
  Company Number: US-AUROBINDO-AUR-APL-2025-020129

PATIENT
  Age: 45 Year
  Sex: Female

DRUGS (3)
  1. ADENOSINE [Suspect]
     Active Substance: ADENOSINE
     Indication: Supraventricular tachycardia
     Route: 065
  2. AMIODARONE HYDROCHLORIDE [Suspect]
     Active Substance: AMIODARONE HYDROCHLORIDE
     Indication: Supraventricular tachycardia
     Route: 065
  3. IBUTILIDE [Suspect]
     Active Substance: IBUTILIDE
     Indication: Supraventricular tachycardia
     Route: 065

REACTIONS (1)
  - Drug ineffective [Unknown]
